FAERS Safety Report 23860206 (Version 1)
Quarter: 2024Q2

REPORT INFORMATION
  Report Type: Spontaneous
  Country: JP (occurrence: JP)
  Receive Date: 20240515
  Receipt Date: 20240515
  Transmission Date: 20240715
  Serious: Yes (Hospitalization, Other)
  Sender: FDA-Public Use
  Company Number: JP-ORGANON-O2404JPN003197

PATIENT
  Age: 96 Year
  Sex: Female

DRUGS (12)
  1. DESLORATADINE [Suspect]
     Active Substance: DESLORATADINE
     Indication: Urticaria
     Dosage: UNK, PRN
     Route: 048
  2. DESLORATADINE [Suspect]
     Active Substance: DESLORATADINE
     Dosage: 5 MILLIGRAM, QD
     Route: 048
     Dates: start: 20240403, end: 20240408
  3. ASPIRIN [Concomitant]
     Active Substance: ASPIRIN
     Dosage: 100 MILLIGRAM, QD
     Route: 048
  4. ELDECALCITOL [Concomitant]
     Active Substance: ELDECALCITOL
     Dosage: 0.75 MICROGRAM, QD
     Route: 065
  5. ROSUVASTATIN CALCIUM [Concomitant]
     Active Substance: ROSUVASTATIN CALCIUM
     Dosage: 5 MILLIGRAM, QD
     Route: 048
  6. VONOPRAZAN FUMARATE [Concomitant]
     Active Substance: VONOPRAZAN FUMARATE
     Dosage: 10 MILLIGRAM, QD
     Route: 048
  7. HERBALS [Concomitant]
     Active Substance: HERBALS
     Dosage: 7.5 MILLIGRAM, TID
     Route: 065
  8. MAGNESIUM OXIDE [Concomitant]
     Active Substance: MAGNESIUM OXIDE
     Dosage: 500 MILLIGRAM, BID
     Route: 048
  9. DAYVIGO [Concomitant]
     Active Substance: LEMBOREXANT
     Dosage: 5 MILLIGRAM, QD
     Route: 048
  10. CELECOXIB [Concomitant]
     Active Substance: CELECOXIB
     Dosage: 100 MILLIGRAM, QD
     Route: 048
  11. CLOTIAZEPAM [Concomitant]
     Active Substance: CLOTIAZEPAM
     Dosage: 5 MILLIGRAM, TID
     Route: 048
     Dates: start: 20240403
  12. LORATADINE [Concomitant]
     Active Substance: LORATADINE
     Dosage: UNK
     Route: 048

REACTIONS (4)
  - Arrhythmia [Recovered/Resolved]
  - Aspiration [Recovered/Resolved]
  - Anaphylactic shock [Recovered/Resolved]
  - Product use issue [Unknown]

NARRATIVE: CASE EVENT DATE: 20240408
